FAERS Safety Report 5809860-0 (Version None)
Quarter: 2008Q3

REPORT INFORMATION
  Report Type: 
  Country: None (occurrence: None)
  Receive Date: 20080715
  Receipt Date: 20080703
  Transmission Date: 20090109
  Serious: Yes (Hospitalization)
  Sender: FDA-Public Use
  Company Number: US-BRISTOL-MYERS SQUIBB COMPANY-14249007

PATIENT
  Age: 68 Year
  Sex: Male
  Weight: 104 kg

DRUGS (3)
  1. ERBITUX [Suspect]
     Indication: PHARYNGEAL CANCER STAGE UNSPECIFIED
     Dosage: STARTED ON 22MAY08
     Route: 042
     Dates: start: 20080625, end: 20080625
  2. CISPLATIN [Suspect]
     Indication: PHARYNGEAL CANCER STAGE UNSPECIFIED
     Dosage: STARTED ON 22MAY08
     Route: 042
     Dates: start: 20080619, end: 20080619
  3. RADIATION THERAPY [Suspect]
     Indication: PHARYNGEAL CANCER STAGE UNSPECIFIED
     Dosage: TOTAL OF 56GY TO DATE
     Dates: start: 20080701, end: 20080701

REACTIONS (1)
  - MUCOSAL INFLAMMATION [None]
